FAERS Safety Report 6183855-2 (Version None)
Quarter: 2009Q2

REPORT INFORMATION
  Report Type: 
  Country: None (occurrence: None)
  Receive Date: 20090508
  Receipt Date: 20090428
  Transmission Date: 20091009
  Serious: Yes (Other)
  Sender: FDA-Public Use
  Company Number: US-PFIZER INC-2008012675

PATIENT
  Sex: Female
  Weight: 74 kg

DRUGS (6)
  1. CHANTIX [Suspect]
     Indication: SMOKING CESSATION THERAPY
     Dosage: 0.5 MG, 1X/DAY
     Dates: start: 20071204, end: 20081201
  2. TOPAMAX [Concomitant]
     Indication: MIGRAINE
     Dosage: 100 MG, 1X/DAY
  3. MORPHINE [Concomitant]
     Route: 062
  4. BACLOFEN [Concomitant]
     Dosage: UNK
  5. IRON [Concomitant]
     Dosage: UNK
  6. VITAMIN B COMPLEX CAP [Concomitant]
     Dosage: UNK

REACTIONS (9)
  - AMNESIA [None]
  - DYSPNOEA [None]
  - HEAD INJURY [None]
  - IMPAIRED DRIVING ABILITY [None]
  - LOSS OF CONSCIOUSNESS [None]
  - MIGRAINE [None]
  - PAIN [None]
  - WEIGHT INCREASED [None]
  - WHEEZING [None]
